FAERS Safety Report 6227464-5 (Version None)
Quarter: 2009Q2

REPORT INFORMATION
  Report Type: 
  Country: None (occurrence: None)
  Receive Date: 20090612
  Receipt Date: 20090602
  Transmission Date: 20091009
  Serious: Yes (Hospitalization)
  Sender: FDA-Public Use
  Company Number: PHHY2009MX21559

PATIENT
  Sex: Female

DRUGS (4)
  1. DIOVAN HCT [Suspect]
     Indication: HYPERTENSION
     Dosage: 1 DF(160/12.5)/ DAY
     Route: 048
  2. DIOVAN HCT [Suspect]
     Dosage: 2 DF
     Route: 048
  3. SEROPRAM [Concomitant]
     Indication: DEPRESSION
     Dosage: 1 DF/DAY
     Dates: start: 20090602
  4. ZANIDIP [Concomitant]
     Indication: HYPERTENSION
     Dosage: 1 DF/DAY

REACTIONS (4)
  - CATARACT [None]
  - CATARACT OPERATION [None]
  - HYPERTENSION [None]
  - INCORRECT DOSE ADMINISTERED [None]
